FAERS Safety Report 19413288 (Version 1)
Quarter: 2021Q2

REPORT INFORMATION
  Report Type: Other
  Country: DE (occurrence: DE)
  Receive Date: 20210614
  Receipt Date: 20210614
  Transmission Date: 20210717
  Serious: Yes (Other)
  Sender: FDA-Public Use
  Company Number: DE-ROCHE-2763931

PATIENT
  Age: 45 Year
  Sex: Female
  Weight: 74 kg

DRUGS (18)
  1. HISTAKUT [Concomitant]
     Active Substance: DIMETHINDENE MALEATE
     Indication: PREMEDICATION
     Dosage: INITIAL DOSE 1X EVERY 2 WEEKS
     Route: 042
     Dates: start: 20190605, end: 20200609
  2. SULBUTAMOL [Concomitant]
     Indication: ASTHMA
     Dosage: DEFINITION OF THE INTERVAL: AS REQUIRED
     Route: 055
     Dates: start: 200607
  3. PREDNISOLUT [Concomitant]
     Active Substance: PREDNISOLONE
     Indication: PREMEDICATION
     Dosage: INITIAL DOSE 1X EVERY 2 WEEKS
     Route: 042
     Dates: start: 20190505, end: 20200609
  4. OCRELIZUMAB. [Suspect]
     Active Substance: OCRELIZUMAB
     Route: 042
     Dates: start: 20191203
  5. L?THYROXIN [Concomitant]
     Active Substance: LEVOTHYROXINE SODIUM
     Indication: THYROID DISORDER
     Route: 048
     Dates: start: 201701
  6. YENTREVE [Concomitant]
     Active Substance: DULOXETINE HYDROCHLORIDE
     Indication: STRESS URINARY INCONTINENCE
     Route: 048
     Dates: start: 201101
  7. FOLSAN [Concomitant]
     Active Substance: FOLIC ACID
     Indication: FOLATE DEFICIENCY
     Route: 048
     Dates: start: 201901
  8. PANTOZOL [Concomitant]
     Active Substance: PANTOPRAZOLE SODIUM
     Indication: PREMEDICATION
     Route: 048
     Dates: start: 20190605
  9. CYCLO?PROGYNOVA [Concomitant]
     Indication: MENSTRUAL DISORDER
     Route: 048
     Dates: start: 20201110, end: 20201130
  10. OCRELIZUMAB. [Suspect]
     Active Substance: OCRELIZUMAB
     Indication: RELAPSING MULTIPLE SCLEROSIS
     Route: 042
     Dates: start: 20190605, end: 20190619
  11. HISTAKUT [Concomitant]
     Active Substance: DIMETHINDENE MALEATE
     Dosage: INCREASE, DUE TO INFUSION REACTION AFTER LAST ADMINISTRATION
     Route: 042
     Dates: start: 20210128
  12. VALDOXAN [Concomitant]
     Active Substance: AGOMELATINE
     Route: 048
     Dates: start: 201008
  13. MELPERON [Concomitant]
     Active Substance: MELPERONE
     Indication: RESTLESSNESS
     Route: 048
     Dates: start: 20180912
  14. ZOLPIDEM [Concomitant]
     Active Substance: ZOLPIDEM TARTRATE
     Indication: SLEEP DISORDER
     Route: 048
     Dates: start: 2011
  15. PREDNISOLUT [Concomitant]
     Active Substance: PREDNISOLONE
     Dosage: INCREASE, DUE TO INFUSION REACTION AFTER LAST ADMINISTRATION
     Route: 042
     Dates: start: 20210128
  16. PREDNISOLON [Concomitant]
     Active Substance: PREDNISOLONE
     Dosage: FOR A TOTAL OF 7 DAYS, AFTER EACH OCREVUS ADMINISTRATION (INFUSION RESPONSE AFTER LAST CYCLE 06/2020
     Route: 048
     Dates: start: 20210129
  17. PARACETAMOL [Concomitant]
     Active Substance: ACETAMINOPHEN
     Indication: PREMEDICATION
     Route: 048
     Dates: start: 20190605
  18. PULMICORD [Concomitant]
     Indication: ASTHMA
     Dosage: DEFINITION OF THE INTERVAL: AS REQUIRED
     Route: 055
     Dates: start: 200607

REACTIONS (1)
  - Generalised oedema [Recovering/Resolving]

NARRATIVE: CASE EVENT DATE: 20200609
